FAERS Safety Report 8504869 (Version 2)
Quarter: 2013Q2

REPORT INFORMATION
  Report Type: Spontaneous
  Country: US (occurrence: None)
  Receive Date: 20120327
  Receipt Date: 20120709
  Transmission Date: 20140414
  Serious: Yes (Other)
  Sender: FDA-Public Use
  Company Number: PHEH2009US10684

PATIENT
  Age: 32 Year
  Sex: Female

DRUGS (11)
  1. GLEEVEC [Suspect]
     Indication: CHRONIC MYELOID LEUKAEMIA
     Dosage: 400 MG, DAILY, ORAL
     Route: 048
     Dates: start: 20090622, end: 20090831
  2. ALLOPURINOL [Suspect]
     Indication: TUMOUR LYSIS SYNDROME
     Dosage: 300 MG, DAILY, ORAL
     Route: 048
     Dates: start: 20090527, end: 20090805
  3. METOLAZONE [Concomitant]
  4. AMLODIPINE BESYLATE W/BENAZEPRIL (AMLODIPINE BESILATE, BENAZEPRIL) [Concomitant]
  5. SPIRONOLACTONE [Concomitant]
  6. BUSPIRONE HYDROCHLORIDE [Concomitant]
  7. LASIX [Concomitant]
  8. LORAZEPAM [Concomitant]
  9. LEXAPRO [Concomitant]
  10. TYLENOL (PARACETAMOL) [Concomitant]
  11. ADVIL [Concomitant]

REACTIONS (1)
  - EXFOLIATIVE RASH [None]
